FAERS Safety Report 10030980 (Version 2)
Quarter: 2014Q1

REPORT INFORMATION
  Report Type: Report from Study
  Country: US (occurrence: US)
  Receive Date: 20140324
  Receipt Date: 20140324
  Transmission Date: 20141002
  Serious: Yes (Other)
  Sender: FDA-Public Use
  Company Number: US-ROCHE-1208757

PATIENT
  Sex: Female

DRUGS (16)
  1. LUCENTIS [Suspect]
     Indication: DIABETIC RETINOPATHY
     Route: 065
  2. LUCENTIS [Suspect]
     Indication: DIABETIC RETINAL OEDEMA
  3. LUCENTIS [Suspect]
     Indication: DIABETIC EYE DISEASE
  4. AVASTIN [Suspect]
     Indication: DIABETIC RETINOPATHY
     Dosage: LEFT EYE
     Route: 050
  5. AVASTIN [Suspect]
     Indication: DIABETIC RETINAL OEDEMA
  6. CALCITRIOL [Concomitant]
     Route: 048
  7. GLIMEPIRIDE [Concomitant]
     Route: 048
  8. METOPROLOL TARTRATE [Concomitant]
     Route: 048
  9. MICARDIS HCT [Concomitant]
     Dosage: 80-12.5MG
     Route: 048
  10. PLAVIX [Concomitant]
     Route: 048
  11. SIMVASTATIN [Concomitant]
     Route: 048
  12. ULORIC [Concomitant]
     Route: 048
  13. VITAMIN D3 [Concomitant]
     Route: 048
  14. COSOPT [Concomitant]
     Dosage: 2-0.5%
     Route: 065
  15. OMNIPRED [Concomitant]
     Dosage: RIGHT EYE
     Route: 065
  16. MYDRIACYL [Concomitant]
     Dosage: OU
     Route: 065

REACTIONS (4)
  - Ocular hyperaemia [Unknown]
  - Eye pruritus [Unknown]
  - Vitreous floaters [Unknown]
  - Eye disorder [Unknown]
